FAERS Safety Report 18856943 (Version 5)
Quarter: 2021Q3

REPORT INFORMATION
  Report Type: Spontaneous
  Country: US (occurrence: US)
  Receive Date: 20210208
  Receipt Date: 20210723
  Transmission Date: 20211014
  Serious: Yes (Hospitalization, Other)
  Sender: FDA-Public Use
  Company Number: US-SA-2021SA038097

PATIENT
  Age: 77 Year
  Sex: Female

DRUGS (38)
  1. LACTULOSE. [Concomitant]
     Active Substance: LACTULOSE
  2. ZINC. [Concomitant]
     Active Substance: ZINC
  3. ONDANSETRON HCL [Concomitant]
     Active Substance: ONDANSETRON HYDROCHLORIDE
  4. ARIPIPRAZOLE. [Concomitant]
     Active Substance: ARIPIPRAZOLE
  5. AMITRIPTYLINE HCL [Concomitant]
     Active Substance: AMITRIPTYLINE
  6. ABILIFY [Concomitant]
     Active Substance: ARIPIPRAZOLE
  7. VITAMIN D3 [Concomitant]
     Active Substance: CHOLECALCIFEROL
  8. NYSTATIN;TRIAMCINOLONE [Concomitant]
  9. OFEV [Concomitant]
     Active Substance: NINTEDANIB
  10. DOTTI [Concomitant]
     Active Substance: ESTRADIOL
  11. VITAMIN C [Concomitant]
     Active Substance: ASCORBIC ACID
  12. MUCINEX [Concomitant]
     Active Substance: GUAIFENESIN
  13. ZOFRAN [Concomitant]
     Active Substance: ONDANSETRON HYDROCHLORIDE
  14. SENNA PLUS [SENNA ALEXANDRINA] [Concomitant]
  15. MAGNESIUM [Concomitant]
     Active Substance: MAGNESIUM
  16. DUPIXENT [Suspect]
     Active Substance: DUPILUMAB
     Indication: DERMATITIS ATOPIC
     Dosage: 300 MG, QOW
     Route: 058
     Dates: start: 20200821
  17. ALEVE [Concomitant]
     Active Substance: NAPROXEN SODIUM
  18. CLOBETASOL PROPIONATE. [Concomitant]
     Active Substance: CLOBETASOL PROPIONATE
  19. CLONAZEPAM. [Concomitant]
     Active Substance: CLONAZEPAM
  20. DUPIXENT [Suspect]
     Active Substance: DUPILUMAB
     Indication: DERMATITIS ATOPIC
     Dosage: 300 MG, QOW
     Route: 058
     Dates: start: 20200821
  21. CLARITIN?D 12 HOUR [Concomitant]
     Active Substance: LORATADINE\PSEUDOEPHEDRINE SULFATE
     Dosage: UNK
  22. SYNTHROID [Concomitant]
     Active Substance: LEVOTHYROXINE SODIUM
  23. DUPIXENT [Suspect]
     Active Substance: DUPILUMAB
     Indication: DERMATITIS ATOPIC
     Dosage: 300 MG, QOW
     Route: 058
     Dates: start: 20200821
  24. EFFEXOR [Concomitant]
     Active Substance: VENLAFAXINE HYDROCHLORIDE
  25. VITAMINS NOS [Concomitant]
     Active Substance: VITAMINS
  26. TYLENOL [Concomitant]
     Active Substance: ACETAMINOPHEN
  27. ESCITALOPRAM OXALATE. [Concomitant]
     Active Substance: ESCITALOPRAM OXALATE
  28. HYDROMORPHONE HCL [Concomitant]
     Active Substance: HYDROMORPHONE HYDROCHLORIDE
  29. FLOVENT HFA [Concomitant]
     Active Substance: FLUTICASONE PROPIONATE
  30. ALBUTEROL SULFATE HFA [Concomitant]
     Active Substance: ALBUTEROL SULFATE
  31. VITAMIN B COMPLEX [Concomitant]
     Active Substance: CYANOCOBALAMIN\DEXPANTHENOL\NIACINAMIDE\PYRIDOXINE HYDROCHLORIDE\RIBOFLAVIN 5^-PHOSPHATE SODIUM\THIAMINE HYDROCHLORIDE\VITAMIN B COMPLEX
  32. EPINEPHRINE. [Concomitant]
     Active Substance: EPINEPHRINE
  33. DUPIXENT [Suspect]
     Active Substance: DUPILUMAB
     Indication: DERMATITIS ATOPIC
     Dosage: 300 MG, QOW
     Route: 058
     Dates: start: 20200821
  34. AMITRIPTYLINE HCL [Concomitant]
     Active Substance: AMITRIPTYLINE
     Dosage: UNK
  35. LASIX [Concomitant]
     Active Substance: FUROSEMIDE
     Dosage: UNK
  36. FISH OIL [Concomitant]
     Active Substance: FISH OIL
  37. PRESERVISION AREDS [Concomitant]
     Active Substance: MINERALS\VITAMINS
  38. VENLAFAXINE HCL [Concomitant]
     Active Substance: VENLAFAXINE HYDROCHLORIDE

REACTIONS (27)
  - Sleep apnoea syndrome [Unknown]
  - Head discomfort [Unknown]
  - Lower limb fracture [Unknown]
  - Pain in extremity [Unknown]
  - Inappropriate schedule of product administration [Unknown]
  - Facial bones fracture [Unknown]
  - Eye irritation [Unknown]
  - Fatigue [Unknown]
  - Rehabilitation therapy [Unknown]
  - Loss of consciousness [Unknown]
  - Headache [Unknown]
  - Occipital neuralgia [Unknown]
  - Limb discomfort [Unknown]
  - Rib fracture [Unknown]
  - Fall [Unknown]
  - Nerve compression [Unknown]
  - Arthralgia [Unknown]
  - Lip injury [Unknown]
  - Oxygen saturation decreased [Unknown]
  - Anaphylactic reaction [Unknown]
  - Concussion [Unknown]
  - Memory impairment [Unknown]
  - Muscular weakness [Unknown]
  - Neck pain [Unknown]
  - Upper limb fracture [Unknown]
  - Post-traumatic stress disorder [Unknown]
  - Hand fracture [Unknown]
